FAERS Safety Report 8779966 (Version 1)
Quarter: 2012Q4

REPORT INFORMATION
  Report Type: Spontaneous
  Country: US (occurrence: None)
  Receive Date: 20120831
  Receipt Date: 20120831
  Transmission Date: 20130627
  Serious: Yes (Other)
  Sender: FDA-Public Use
  Company Number: None

PATIENT
  Age: 65 Year
  Sex: Male
  Weight: 68.6 kg

DRUGS (9)
  1. ATORVASTATIN [Suspect]
     Dosage: 40mg once daily by mouth
     Route: 048
     Dates: start: 20110728, end: 20120807
  2. METOPROLOL [Concomitant]
  3. ISOSORBIDE MONON04 [Concomitant]
  4. LOSARTAN [Concomitant]
  5. ASA [Concomitant]
  6. LANTUS [Concomitant]
  7. PLAVIX [Concomitant]
  8. PANTOPRAZOLE [Concomitant]
  9. DIGOXIN [Concomitant]

REACTIONS (2)
  - Myalgia [None]
  - Back pain [None]
